FAERS Safety Report 9353317 (Version 1)
Quarter: 2013Q2

REPORT INFORMATION
  Report Type: Spontaneous
  Country: CA (occurrence: CA)
  Receive Date: 20130618
  Receipt Date: 20130618
  Transmission Date: 20140414
  Serious: Yes (Death)
  Sender: FDA-Public Use
  Company Number: CA-PFIZER INC-2013177949

PATIENT
  Age: 71 Year
  Sex: Female
  Weight: 64 kg

DRUGS (15)
  1. CELEBREX [Suspect]
     Dosage: 200 MG, 1X/DAY AS NEEDED
     Dates: start: 20010130
  2. LISINOPRIL [Concomitant]
     Indication: HYPERTENSION
     Dosage: 30 MG, 1X/DAY
  3. NOVO-TRIAMZIDE [Concomitant]
     Indication: HYPERTENSION
     Dosage: 25 MG, 1X/DAY
  4. NOVO-TRIAMZIDE [Concomitant]
     Dosage: 50 MG, 1X/DAY
  5. NORVASC [Concomitant]
     Indication: HYPERTENSION
     Dosage: 5 MG, 1X/DAY
  6. LORAZEPAM [Concomitant]
     Indication: ANXIETY
     Dosage: 0.5 MG, 2X/DAY AT MORNING AND BEDTIME
  7. ACTONEL [Concomitant]
     Indication: OSTEOPOROSIS
     Dosage: 5 MG, 1X/DAY
  8. ELTROXIN [Concomitant]
     Indication: HYPOTHYROIDISM
     Dosage: 100 UG, 1X/DAY
  9. SOFLAX [Concomitant]
     Indication: CONSTIPATION
     Dosage: 100 MG, 1X/DAY AT BEDTIME
  10. ZYPREXA [Concomitant]
     Dosage: 10 MG, 1X/DAY
  11. NORTRIPTYLINE [Concomitant]
     Dosage: 50 MG, 1X/DAY
  12. REFRESH TEARS [Concomitant]
     Dosage: AS NEEDED
  13. TYLENOL W/CODEINE NO. 3 [Concomitant]
     Indication: BACK PAIN
     Dosage: AS NEEDED
  14. TYLENOL W/CODEINE NO. 3 [Concomitant]
     Indication: SCIATICA
  15. VIOXX [Concomitant]
     Dosage: 25 MG, 1X/DAY AT SUPPER

REACTIONS (1)
  - Arteriosclerosis coronary artery [Fatal]
